FAERS Safety Report 19798891 (Version 1)
Quarter: 2021Q3

REPORT INFORMATION
  Report Type: Report from Study
  Country: KR (occurrence: KR)
  Receive Date: 20210907
  Receipt Date: 20210907
  Transmission Date: 20211014
  Serious: Yes (Hospitalization)
  Sender: FDA-Public Use
  Company Number: KR-PFIZER INC-2018072968

PATIENT
  Age: 48 Year
  Sex: Female
  Weight: 56 kg

DRUGS (7)
  1. NEOMEDICOUGH [Concomitant]
     Indication: COUGH
     Dosage: 1 DF (TABLET), 3X/DAY
     Route: 048
     Dates: start: 20171211
  2. ROSUVASTATIN CALCIUM. [Concomitant]
     Active Substance: ROSUVASTATIN CALCIUM
     Indication: BLOOD CHOLESTEROL INCREASED
     Dosage: 5.2 MG, 1X/DAY
     Route: 048
     Dates: start: 20180110
  3. ROSUVASTATIN CALCIUM. [Concomitant]
     Active Substance: ROSUVASTATIN CALCIUM
     Indication: HYPERTRIGLYCERIDAEMIA
  4. LORLATINIB [Suspect]
     Active Substance: LORLATINIB
     Indication: NON-SMALL CELL LUNG CANCER
     Dosage: 100 MG, 1X/DAY
     Route: 048
     Dates: start: 20180103, end: 20180215
  5. AMLODIPINE BESYLATE. [Concomitant]
     Active Substance: AMLODIPINE BESYLATE
     Indication: HYPERTENSION
     Dosage: 6.944 MG, 1X/DAY
     Route: 048
     Dates: start: 20180103
  6. ACETYLCYSTEINE /00082802/ [Concomitant]
     Active Substance: ACETYLCYSTEINE
     Indication: PRODUCTIVE COUGH
     Dosage: 200 MG, 3X/DAY
     Route: 048
     Dates: start: 20171211
  7. ZOLPIDEM TARTRATE. [Concomitant]
     Active Substance: ZOLPIDEM TARTRATE
     Indication: INSOMNIA
     Dosage: 6.25 MG, SINGLE, BEFORE BED
     Route: 048
     Dates: start: 20180214, end: 20180214

REACTIONS (1)
  - Intentional self-injury [Recovered/Resolved]

NARRATIVE: CASE EVENT DATE: 20180215
